FAERS Safety Report 12186641 (Version 23)
Quarter: 2022Q4

REPORT INFORMATION
  Report Type: Other
  Country: CA (occurrence: CA)
  Receive Date: 20160317
  Receipt Date: 20221228
  Transmission Date: 20230113
  Serious: Yes (Other)
  Sender: FDA-Public Use
  Company Number: CA-ROCHE-1727203

PATIENT
  Age: 11 Year
  Sex: Female

DRUGS (32)
  1. XOLAIR [Suspect]
     Active Substance: OMALIZUMAB
     Indication: Asthma
     Dosage: POWDER AND SOLVENT FOR SOLUTION FOR INJECTION
     Route: 058
     Dates: start: 20140522
  2. XOLAIR [Suspect]
     Active Substance: OMALIZUMAB
     Dosage: POWDER AND SOLVENT FOR SOLUTION FOR INJECTION
     Route: 058
     Dates: start: 20150911
  3. XOLAIR [Suspect]
     Active Substance: OMALIZUMAB
     Dosage: POWDER AND SOLVENT FOR SOLUTION FOR INJECTION
     Route: 058
     Dates: start: 20160310
  4. XOLAIR [Suspect]
     Active Substance: OMALIZUMAB
     Dosage: POWDER AND SOLVENT FOR SOLUTION FOR INJECTION
     Route: 058
     Dates: start: 20160323
  5. XOLAIR [Suspect]
     Active Substance: OMALIZUMAB
     Dosage: POWDER AND SOLVENT FOR SOLUTION FOR INJECTION
     Route: 058
     Dates: start: 20160407
  6. XOLAIR [Suspect]
     Active Substance: OMALIZUMAB
     Dosage: POWDER AND SOLVENT FOR SOLUTION FOR INJECTION
     Route: 058
     Dates: start: 20160421
  7. XOLAIR [Suspect]
     Active Substance: OMALIZUMAB
     Dosage: POWDER AND SOLVENT FOR SOLUTION FOR INJECTION
     Route: 058
     Dates: start: 20160721
  8. XOLAIR [Suspect]
     Active Substance: OMALIZUMAB
     Dosage: POWDER AND SOLVENT FOR SOLUTION FOR INJECTION
     Route: 058
     Dates: start: 20160915
  9. XOLAIR [Suspect]
     Active Substance: OMALIZUMAB
     Dosage: POWDER AND SOLVENT FOR SOLUTION FOR INJECTION
     Route: 058
     Dates: start: 20161013
  10. XOLAIR [Suspect]
     Active Substance: OMALIZUMAB
     Dosage: POWDER AND SOLVENT FOR SOLUTION FOR INJECTION
     Route: 058
     Dates: start: 20160225
  11. XOLAIR [Suspect]
     Active Substance: OMALIZUMAB
     Dosage: POWDER AND SOLVENT FOR SOLUTION FOR INJECTION
     Route: 058
     Dates: start: 20161222
  12. XOLAIR [Suspect]
     Active Substance: OMALIZUMAB
     Dosage: POWDER AND SOLVENT FOR SOLUTION FOR INJECTION
     Route: 058
  13. XOLAIR [Suspect]
     Active Substance: OMALIZUMAB
     Dosage: POWDER AND SOLVENT FOR SOLUTION FOR INJECTION
     Route: 058
     Dates: start: 20170622
  14. XOLAIR [Suspect]
     Active Substance: OMALIZUMAB
     Dosage: POWDER AND SOLVENT FOR SOLUTION FOR INJECTION
     Route: 058
     Dates: start: 20170728
  15. XOLAIR [Suspect]
     Active Substance: OMALIZUMAB
     Dosage: POWDER AND SOLVENT FOR SOLUTION FOR INJECTION
     Route: 058
     Dates: start: 20170811
  16. XOLAIR [Suspect]
     Active Substance: OMALIZUMAB
     Dosage: POWDER AND SOLVENT FOR SOLUTION FOR INJECTION
     Route: 058
     Dates: start: 20170831
  17. XOLAIR [Suspect]
     Active Substance: OMALIZUMAB
     Dosage: POWDER AND SOLVENT FOR SOLUTION FOR INJECTION
     Route: 058
     Dates: start: 20170912
  18. XOLAIR [Suspect]
     Active Substance: OMALIZUMAB
     Dosage: POWDER AND SOLVENT FOR SOLUTION FOR INJECTION
     Route: 058
     Dates: start: 20170928
  19. XOLAIR [Suspect]
     Active Substance: OMALIZUMAB
     Dosage: POWDER AND SOLVENT FOR SOLUTION FOR INJECTION
     Route: 058
     Dates: start: 20171109
  20. XOLAIR [Suspect]
     Active Substance: OMALIZUMAB
     Dosage: POWDER AND SOLVENT FOR SOLUTION FOR INJECTION
     Route: 058
     Dates: start: 20171122
  21. XOLAIR [Suspect]
     Active Substance: OMALIZUMAB
     Dosage: POWDER AND SOLVENT FOR SOLUTION FOR INJECTION
     Route: 058
     Dates: start: 20171221
  22. XOLAIR [Suspect]
     Active Substance: OMALIZUMAB
     Route: 058
  23. XOLAIR [Suspect]
     Active Substance: OMALIZUMAB
     Route: 058
     Dates: start: 20180426
  24. XOLAIR [Suspect]
     Active Substance: OMALIZUMAB
     Route: 058
     Dates: start: 20180524
  25. XOLAIR [Suspect]
     Active Substance: OMALIZUMAB
     Route: 058
     Dates: start: 20180607
  26. XOLAIR [Suspect]
     Active Substance: OMALIZUMAB
     Route: 058
     Dates: start: 20210422
  27. XOLAIR [Suspect]
     Active Substance: OMALIZUMAB
     Route: 058
  28. XOLAIR [Suspect]
     Active Substance: OMALIZUMAB
     Route: 058
  29. XOLAIR [Suspect]
     Active Substance: OMALIZUMAB
     Route: 058
  30. XOLAIR [Suspect]
     Active Substance: OMALIZUMAB
     Route: 058
  31. XOLAIR [Suspect]
     Active Substance: OMALIZUMAB
     Route: 058
  32. VENTOLIN [Concomitant]
     Active Substance: ALBUTEROL SULFATE
     Indication: Product used for unknown indication
     Dosage: UNK, PRN

REACTIONS (24)
  - Wheezing [Unknown]
  - Weight increased [Unknown]
  - Pruritus [Not Recovered/Not Resolved]
  - Nasal congestion [Recovering/Resolving]
  - Stress [Recovering/Resolving]
  - Incorrect route of product administration [Unknown]
  - Illness [Recovering/Resolving]
  - Influenza [Recovered/Resolved]
  - Dyspnoea [Unknown]
  - Asthma [Unknown]
  - Blood pressure decreased [Not Recovered/Not Resolved]
  - Skin plaque [Unknown]
  - Respiratory tract infection [Recovering/Resolving]
  - Oedema peripheral [Not Recovered/Not Resolved]
  - Lip swelling [Recovering/Resolving]
  - Pyrexia [Recovering/Resolving]
  - Erythema [Recovered/Resolved]
  - Rash [Recovered/Resolved]
  - Asthma [Unknown]
  - Urticaria [Recovering/Resolving]
  - Fatigue [Unknown]
  - Swelling [Recovered/Resolved]
  - Cough [Not Recovered/Not Resolved]
  - Urticaria [Recovering/Resolving]

NARRATIVE: CASE EVENT DATE: 20151201
